FAERS Safety Report 10030443 (Version 1)
Quarter: 2014Q1

REPORT INFORMATION
  Report Type: Spontaneous
  Country: US (occurrence: US)
  Receive Date: 20140323
  Receipt Date: 20140323
  Transmission Date: 20141002
  Serious: No
  Sender: FDA-Public Use
  Company Number: US-ALLERGAN-1402303US

PATIENT
  Age: 66 Year
  Sex: Female

DRUGS (6)
  1. LATISSE 0.03% [Suspect]
     Indication: GROWTH OF EYELASHES
     Dosage: 2 GTT, QHS
     Route: 061
     Dates: start: 201312
  2. LATISSE 0.03% [Suspect]
     Dosage: 2 GTT, QHS
     Route: 061
     Dates: start: 20131121
  3. WELLBUTRIN [Concomitant]
     Indication: DEPRESSION
     Dosage: 75 MG, BID
     Route: 048
  4. ATIVAN [Concomitant]
     Indication: ANXIETY
     Dosage: 2 MG, TID
     Route: 048
  5. SOMA [Concomitant]
     Indication: FIBROMYALGIA
     Dosage: 700 MG, TID
     Route: 048
  6. LATANAPROST [Concomitant]
     Indication: GLAUCOMA
     Dosage: 2 GTT, QHS
     Route: 047
     Dates: start: 2009

REACTIONS (1)
  - Therapeutic response decreased [Unknown]
